FAERS Safety Report 6207095-3 (Version None)
Quarter: 2009Q2

REPORT INFORMATION
  Report Type: 
  Country: None (occurrence: None)
  Receive Date: 20090528
  Receipt Date: 20090515
  Transmission Date: 20091009
  Serious: Yes (Hospitalization, Other)
  Sender: FDA-Public Use
  Company Number: US-ELI_LILLY_AND_COMPANY-US200905003611

PATIENT
  Sex: Female
  Weight: 72.2 kg

DRUGS (9)
  1. ALIMTA [Suspect]
     Indication: LUNG ADENOCARCINOMA STAGE IV
     Dosage: 500 MG/M2, MAINTENANCE
     Dates: start: 20090317, end: 20090301
  2. AVASTIN [Concomitant]
     Indication: LUNG ADENOCARCINOMA STAGE IV
     Dosage: 15 D/F, EVERY 3 WEEKS MAINTENANCE
     Route: 042
     Dates: start: 20090317
  3. ZOMETA [Concomitant]
     Indication: LUNG ADENOCARCINOMA STAGE IV
  4. HYDROCODONE BITARTRATE [Concomitant]
     Indication: PAIN
     Dosage: 7.5 MG, AS NEEDED
     Route: 048
  5. IBUPROFEN [Concomitant]
     Indication: PAIN
     Dosage: 200 MG, AS NEEDED
  6. NEXIUM [Concomitant]
     Dosage: 20 MG, DAILY (1/D)
     Route: 048
  7. NEURONTIN [Concomitant]
     Dosage: 600 MG, 2/D
     Route: 048
  8. AVINZA [Concomitant]
     Indication: PAIN
     Dosage: 60 MG, AS NEEDED
  9. ZOFRAN [Concomitant]
     Indication: NAUSEA
     Dosage: 8 MEQ, AS NEEDED

REACTIONS (7)
  - ABDOMINAL PAIN [None]
  - ANXIETY [None]
  - CHEST PAIN [None]
  - DEPRESSION [None]
  - HYPONATRAEMIA [None]
  - INAPPROPRIATE ANTIDIURETIC HORMONE SECRETION [None]
  - VOMITING [None]
